FAERS Safety Report 7375009-9 (Version None)
Quarter: 2011Q1

REPORT INFORMATION
  Report Type: 
  Country: None (occurrence: None)
  Receive Date: 20110325
  Receipt Date: 20110314
  Transmission Date: 20110831
  Serious: Yes (Other)
  Sender: FDA-Public Use
  Company Number: PHHY2011DE21448

PATIENT
  Age: 63 Year
  Sex: Male

DRUGS (4)
  1. CYTARABINE [Concomitant]
  2. IMATINIB [Suspect]
     Indication: ACUTE MYELOID LEUKAEMIA
     Dosage: UNK
  3. HYDROXYCARBAMIDE [Concomitant]
  4. DAUNORUBICIN [Concomitant]

REACTIONS (1)
  - ACUTE MYELOID LEUKAEMIA RECURRENT [None]
